FAERS Safety Report 7420046-9 (Version None)
Quarter: 2011Q2

REPORT INFORMATION
  Report Type: 
  Country: None (occurrence: None)
  Receive Date: 20110418
  Receipt Date: 20110406
  Transmission Date: 20111010
  Serious: No
  Sender: FDA-Public Use
  Company Number: US-BIOGENIDEC-2011BI013290

PATIENT
  Age: 53 Year
  Sex: Female

DRUGS (2)
  1. TYSABRI [Suspect]
     Indication: MULTIPLE SCLEROSIS
     Route: 042
     Dates: start: 20101209
  2. TYSABRI [Suspect]
     Route: 042
     Dates: start: 20050228, end: 20050228

REACTIONS (3)
  - INTESTINAL FUNCTIONAL DISORDER [None]
  - BLADDER DYSFUNCTION [None]
  - WEIGHT INCREASED [None]
